FAERS Safety Report 8426348-1 (Version None)
Quarter: 2012Q2

REPORT INFORMATION
  Report Type: 
  Country: None (occurrence: None)
  Receive Date: 20120323
  Receipt Date: 20110425
  Transmission Date: 20120825
  Serious: Yes (Hospitalization)
  Sender: FDA-Public Use
  Company Number: 163-21880-11043290

PATIENT
  Age: 69 Year
  Sex: Female

DRUGS (7)
  1. COMBIVERT (COMBIVERT) [Concomitant]
  2. SENOKOT [Concomitant]
  3. ADVAIR HFA [Concomitant]
  4. COUMADIN [Concomitant]
  5. SINGULAIR [Concomitant]
  6. MORPHINE [Concomitant]
  7. REVLIMID [Suspect]
     Indication: MULTIPLE MYELOMA
     Dosage: 25 MG, DAILY X 21 DAYS, PO
     Route: 048
     Dates: start: 20101225, end: 20110107

REACTIONS (3)
  - COAGULOPATHY [None]
  - ANAEMIA [None]
  - HYPERBILIRUBINAEMIA [None]
